FAERS Safety Report 9683915 (Version 1)
Quarter: 2013Q4

REPORT INFORMATION
  Report Type: Spontaneous
  Country: US (occurrence: US)
  Receive Date: 20131112
  Receipt Date: 20131112
  Transmission Date: 20140711
  Serious: No
  Sender: FDA-Public Use
  Company Number: US-MALLINCKRODT-T201304306

PATIENT
  Age: 49 Year
  Sex: Male

DRUGS (4)
  1. FENTANYL TRANSDERMAL SYSTEM [Suspect]
     Indication: BACK PAIN
     Dosage: 50 UG/HR, ONE PATCH Q 48HRS
     Route: 062
     Dates: start: 20130830
  2. PERCOCET                           /00446701/ [Concomitant]
     Indication: BREAKTHROUGH PAIN
     Dosage: 10/325 MG, PRN 2X/DAY
     Route: 048
     Dates: start: 2011
  3. LIPID MODIFYING AGENTS [Concomitant]
     Indication: BLOOD CHOLESTEROL
     Dosage: UNK
     Dates: start: 2012
  4. BLOOD PRESSURE MEDICATION [Concomitant]
     Indication: BLOOD PRESSURE
     Dosage: UNK
     Dates: start: 201306

REACTIONS (3)
  - Drug withdrawal syndrome [Not Recovered/Not Resolved]
  - Inappropriate schedule of drug administration [Not Recovered/Not Resolved]
  - Drug effect decreased [Not Recovered/Not Resolved]
